FAERS Safety Report 6544332-X (Version None)
Quarter: 2010Q1

REPORT INFORMATION
  Report Type: 
  Country: None (occurrence: None)
  Receive Date: 20100120
  Receipt Date: 20100120
  Transmission Date: 20100710
  Serious: Yes (Life-Threatening, Other)
  Sender: FDA-Public Use
  Company Number: None

PATIENT
  Sex: Female
  Weight: 38.1022 kg

DRUGS (5)
  1. MOTRIN [Suspect]
     Indication: DIARRHOEA
     Dosage: 3 TABLETS EVERY 6-7 HOURS PO
     Route: 048
     Dates: start: 20091001, end: 20091201
  2. MOTRIN [Suspect]
     Indication: HAEMORRHAGE
     Dosage: 3 TABLETS EVERY 6-7 HOURS PO
     Route: 048
     Dates: start: 20091001, end: 20091201
  3. MOTRIN [Suspect]
     Indication: NASOPHARYNGITIS
     Dosage: 3 TABLETS EVERY 6-7 HOURS PO
     Route: 048
     Dates: start: 20091001, end: 20091201
  4. MOTRIN [Suspect]
     Indication: PAIN
     Dosage: 3 TABLETS EVERY 6-7 HOURS PO
     Route: 048
     Dates: start: 20091001, end: 20091201
  5. MOTRIN [Suspect]
     Indication: PYREXIA
     Dosage: 3 TABLETS EVERY 6-7 HOURS PO
     Route: 048
     Dates: start: 20091001, end: 20091201

REACTIONS (6)
  - ABDOMINAL PAIN UPPER [None]
  - DIARRHOEA HAEMORRHAGIC [None]
  - GASTROINTESTINAL BACTERIAL INFECTION [None]
  - GASTROINTESTINAL DISORDER [None]
  - PAIN [None]
  - VOMITING [None]
